FAERS Safety Report 5509677-0 (Version None)
Quarter: 2007Q4

REPORT INFORMATION
  Report Type: 
  Country: None (occurrence: None)
  Receive Date: 20071107
  Receipt Date: 20071107
  Transmission Date: 20080405
  Serious: Yes (Hospitalization)
  Sender: FDA-Public Use
  Company Number: None

PATIENT
  Sex: Female
  Weight: 76.8 kg

DRUGS (1)
  1. PROMETHAZINE [Suspect]
     Indication: NAUSEA
     Dosage: NOT AVAILABLE NOT AVAILABLE IV
     Route: 042
     Dates: start: 20070103

REACTIONS (2)
  - INJECTION SITE PAIN [None]
  - THROMBOSIS [None]
